FAERS Safety Report 18694065 (Version 3)
Quarter: 2021Q1

REPORT INFORMATION
  Report Type: Report from Study
  Country: AR (occurrence: AR)
  Receive Date: 20210104
  Receipt Date: 20210121
  Transmission Date: 20210419
  Serious: Yes (Hospitalization, Other)
  Sender: FDA-Public Use
  Company Number: NVSC2020AR343118

PATIENT
  Age: 62 Year
  Sex: Male
  Weight: 76 kg

DRUGS (12)
  1. SIMVASTATIN. [Concomitant]
     Active Substance: SIMVASTATIN
     Indication: PRODUCT USED FOR UNKNOWN INDICATION
     Dosage: 10 MG, QD
     Route: 065
  2. NEORAL [Suspect]
     Active Substance: CYCLOSPORINE
     Indication: IMMUNOSUPPRESSION
     Dosage: 25 MG, BID
     Route: 048
     Dates: start: 20001015
  3. RAPAMYCIN [Concomitant]
     Active Substance: SIROLIMUS
     Indication: PRODUCT USED FOR UNKNOWN INDICATION
     Dosage: 1.5 MG, QD
     Route: 048
  4. FERROUS SULFATE. [Concomitant]
     Active Substance: FERROUS SULFATE
     Indication: PRODUCT USED FOR UNKNOWN INDICATION
     Dosage: 200 MG, QD
     Route: 065
  5. OMEPRAZOLE. [Concomitant]
     Active Substance: OMEPRAZOLE
     Indication: PRODUCT USED FOR UNKNOWN INDICATION
     Dosage: 40 MG, QD
     Route: 048
  6. NEORAL [Suspect]
     Active Substance: CYCLOSPORINE
     Indication: TRANSPLANT
     Dosage: 50 MG, QMO
     Route: 048
  7. SIMVASTATIN. [Concomitant]
     Active Substance: SIMVASTATIN
     Dosage: 25 MG, BID
     Route: 065
  8. NEORAL [Suspect]
     Active Substance: CYCLOSPORINE
     Indication: RENAL TRANSPLANT
     Dosage: 20 MG, BID
     Route: 048
  9. LOSARTAN. [Concomitant]
     Active Substance: LOSARTAN
     Indication: PRODUCT USED FOR UNKNOWN INDICATION
     Dosage: 50 MG, QD
     Route: 048
  10. ENALAPRIL [Concomitant]
     Active Substance: ENALAPRIL
     Indication: PRODUCT USED FOR UNKNOWN INDICATION
     Dosage: 10 MG, UNKNOWN
     Route: 065
  11. ACETYLSALICYLIC ACID [Concomitant]
     Active Substance: ASPIRIN
     Indication: PRODUCT USED FOR UNKNOWN INDICATION
     Dosage: 100 MG, QD
     Route: 065
  12. DELTISONE [Concomitant]
     Indication: PRODUCT USED FOR UNKNOWN INDICATION
     Dosage: 4 MG, QD
     Route: 048

REACTIONS (31)
  - Anuria [Unknown]
  - Hiatus hernia [Unknown]
  - Chronic hepatitis C [Recovered/Resolved]
  - Fall [Recovering/Resolving]
  - Head injury [Recovering/Resolving]
  - BK virus infection [Recovered/Resolved]
  - Calcium deficiency [Unknown]
  - Thirst decreased [Unknown]
  - Melaena [Unknown]
  - Urinary retention [Unknown]
  - Barrett^s oesophagus [Unknown]
  - Hypokalaemia [Unknown]
  - Blood cholesterol abnormal [Unknown]
  - Ill-defined disorder [Unknown]
  - Loss of consciousness [Recovering/Resolving]
  - Somnambulism [Unknown]
  - Oedema peripheral [Unknown]
  - Inappropriate schedule of product administration [Unknown]
  - Wound [Unknown]
  - Blood pressure abnormal [Unknown]
  - Decreased appetite [Unknown]
  - Haemoglobin abnormal [Unknown]
  - Tendon rupture [Unknown]
  - Amnesia [Recovering/Resolving]
  - Asthenia [Unknown]
  - Blood phosphorus decreased [Unknown]
  - Blood sodium abnormal [Unknown]
  - Haematocrit decreased [Unknown]
  - Upper gastrointestinal haemorrhage [Unknown]
  - Gait disturbance [Unknown]
  - Multi-vitamin deficiency [Unknown]

NARRATIVE: CASE EVENT DATE: 20200120
